FAERS Safety Report 9602364 (Version 1)
Quarter: 2013Q4

REPORT INFORMATION
  Report Type: Spontaneous
  Country: US (occurrence: US)
  Receive Date: 20131007
  Receipt Date: 20131007
  Transmission Date: 20140711
  Serious: No
  Sender: FDA-Public Use
  Company Number: US-GLAXOSMITHKLINE-A1037069A

PATIENT
  Sex: Female

DRUGS (5)
  1. BENLYSTA [Suspect]
     Indication: SYSTEMIC LUPUS ERYTHEMATOSUS
     Route: 042
     Dates: start: 2012
  2. SOLU-MEDROL [Suspect]
  3. PREDNISONE [Concomitant]
  4. BIOTIN [Concomitant]
  5. FOLIC ACID [Concomitant]

REACTIONS (6)
  - Headache [Unknown]
  - Fatigue [Unknown]
  - Joint stiffness [Unknown]
  - Drug ineffective [Unknown]
  - Wrong technique in drug usage process [Unknown]
  - Drug administration error [Unknown]
